FAERS Safety Report 9385751 (Version 1)
Quarter: 2013Q3

REPORT INFORMATION
  Report Type: Spontaneous
  Country: US (occurrence: US)
  Receive Date: 20130705
  Receipt Date: 20130705
  Transmission Date: 20140515
  Serious: No
  Sender: FDA-Public Use
  Company Number: US-US-EMD SERONO, INC.-7082053

PATIENT
  Age: 47 Year
  Sex: Female

DRUGS (1)
  1. REBIF [Suspect]
     Indication: MULTIPLE SCLEROSIS
     Route: 058
     Dates: start: 20110107

REACTIONS (9)
  - Functional gastrointestinal disorder [Unknown]
  - Bladder disorder [Unknown]
  - Mycobacterium tuberculosis complex test positive [Unknown]
  - Micturition urgency [Unknown]
  - Vision blurred [Not Recovered/Not Resolved]
  - Fatigue [Unknown]
  - Injection site pain [Unknown]
  - Injection site nodule [Unknown]
  - Headache [Unknown]
